FAERS Safety Report 7376575-X (Version None)
Quarter: 2011Q1

REPORT INFORMATION
  Report Type: 
  Country: None (occurrence: None)
  Receive Date: 20110325
  Receipt Date: 20110316
  Transmission Date: 20110831
  Serious: Yes (Other)
  Sender: FDA-Public Use
  Company Number: BR-GENENTECH-303254

PATIENT
  Sex: Female
  Weight: 68 kg

DRUGS (19)
  1. CAPTOPRIL [Concomitant]
     Indication: PRODUCT USED FOR UNKNOWN INDICATION
     Dosage: 25 MG, UNK
  2. DOXYLAMINE [Concomitant]
     Indication: PRODUCT USED FOR UNKNOWN INDICATION
  3. DORFLEX [Concomitant]
     Indication: PRODUCT USED FOR UNKNOWN INDICATION
     Dosage: 100 MG, UNK
  4. DIFENIDRIN [Concomitant]
     Indication: PREMEDICATION
     Dosage: UNK
     Dates: start: 20100604, end: 20100625
  5. SIBUTRAMINE HYDROCHLORIDE MONOHYDRATE [Concomitant]
     Indication: PRODUCT USED FOR UNKNOWN INDICATION
     Dosage: 15 MG, UNK
  6. PREDNISONE [Concomitant]
     Indication: PREMEDICATION
     Dosage: UNK
     Dates: start: 20100604, end: 20100625
  7. AMITRIPTYLINE HCL [Concomitant]
     Indication: PRODUCT USED FOR UNKNOWN INDICATION
  8. RIVOTRIL [Concomitant]
     Indication: PRODUCT USED FOR UNKNOWN INDICATION
  9. DULOXETINE [Concomitant]
     Indication: PRODUCT USED FOR UNKNOWN INDICATION
  10. DEFLAZACORT [Concomitant]
     Indication: PRODUCT USED FOR UNKNOWN INDICATION
     Dosage: 6 MG, Q6H
  11. FLUOXETINE [Concomitant]
     Indication: PRODUCT USED FOR UNKNOWN INDICATION
     Dosage: 20 MG, UNK
  12. OMEPRAZOLE [Concomitant]
     Indication: PRODUCT USED FOR UNKNOWN INDICATION
     Dosage: 20 MG, UNK
  13. TANDRILAX [Concomitant]
     Indication: PRODUCT USED FOR UNKNOWN INDICATION
  14. RITUXIMAB [Suspect]
     Indication: RHEUMATOID ARTHRITIS
     Dosage: 1000 MG, Q15D
     Route: 042
     Dates: start: 20100604, end: 20110204
  15. CALCORT [Concomitant]
     Indication: PRODUCT USED FOR UNKNOWN INDICATION
     Dosage: 6 MG, Q6H
  16. NIMESULIDE [Concomitant]
     Indication: PRODUCT USED FOR UNKNOWN INDICATION
     Dosage: 100 MG, UNK
  17. BESEROL [Concomitant]
     Indication: PRODUCT USED FOR UNKNOWN INDICATION
     Dosage: 100 MG, Q12H
  18. MIOSAN [Concomitant]
     Indication: PRODUCT USED FOR UNKNOWN INDICATION
     Dosage: 5 MG, UNK
  19. CODEINE [Concomitant]
     Indication: PRODUCT USED FOR UNKNOWN INDICATION

REACTIONS (23)
  - NAUSEA [None]
  - MALAISE [None]
  - INSOMNIA [None]
  - MYALGIA [None]
  - CHROMATURIA [None]
  - HYPERTENSION [None]
  - ABDOMINAL DISTENSION [None]
  - DYSPNOEA [None]
  - ERYTHEMA [None]
  - LARYNGEAL OEDEMA [None]
  - ABDOMINAL PAIN UPPER [None]
  - OEDEMA [None]
  - PNEUMONIA [None]
  - HEADACHE [None]
  - TENDON DISORDER [None]
  - ANTINUCLEAR ANTIBODY [None]
  - WEIGHT INCREASED [None]
  - ASTHENIA [None]
  - BLISTER [None]
  - BURSITIS [None]
  - HYPERSENSITIVITY [None]
  - SKIN DISCOLOURATION [None]
  - ILL-DEFINED DISORDER [None]
